FAERS Safety Report 5777040-3 (Version None)
Quarter: 2008Q2

REPORT INFORMATION
  Report Type: 
  Country: None (occurrence: None)
  Receive Date: 20080617
  Receipt Date: 20080617
  Transmission Date: 20081010
  Serious: No
  Sender: FDA-Public Use
  Company Number: None

PATIENT
  Age: 80 Year
  Sex: Male

DRUGS (8)
  1. WARFARIN SODIUM [Suspect]
     Indication: PROPHYLAXIS
     Dosage: 5 MG PO QD LONG
     Route: 048
  2. ATENOLOL [Concomitant]
  3. FLOMAX [Concomitant]
  4. K-DUR [Concomitant]
  5. LASIX [Concomitant]
  6. PRAVACHOL [Concomitant]
  7. TRIAMCINOLONE [Concomitant]
  8. ACETONIDE [Concomitant]

REACTIONS (7)
  - DECREASED APPETITE [None]
  - DRUG TOXICITY [None]
  - EMPYEMA [None]
  - FATIGUE [None]
  - ILL-DEFINED DISORDER [None]
  - INTERNATIONAL NORMALISED RATIO INCREASED [None]
  - WEIGHT DECREASED [None]
